FAERS Safety Report 21519307 (Version 1)
Quarter: 2022Q4

REPORT INFORMATION
  Report Type: Spontaneous
  Country: FR (occurrence: FR)
  Receive Date: 20221028
  Receipt Date: 20221028
  Transmission Date: 20230113
  Serious: Yes (Hospitalization)
  Sender: FDA-Public Use
  Company Number: FR-AFSSAPS-PC20222005

PATIENT
  Age: 66 Year
  Sex: Female
  Weight: 95 kg

DRUGS (8)
  1. AMLODIPINE BESYLATE [Suspect]
     Active Substance: AMLODIPINE BESYLATE
     Indication: Product used for unknown indication
     Dosage: UNK
     Route: 048
     Dates: start: 20210303
  2. ATENOLOL [Suspect]
     Active Substance: ATENOLOL
     Indication: Product used for unknown indication
     Dosage: UNK, 2 TABLET
     Route: 048
     Dates: start: 20210309, end: 20210309
  3. IOMERON [Suspect]
     Active Substance: IOMEPROL
     Indication: Computerised tomogram
     Dosage: UNK
     Route: 042
     Dates: start: 20210309
  4. ALDACTONE [Suspect]
     Active Substance: SPIRONOLACTONE
     Indication: Product used for unknown indication
     Dosage: UNK, PILL IN THE MORNING
     Route: 048
     Dates: start: 20210225, end: 20210227
  5. NITROGLYCERIN [Suspect]
     Active Substance: NITROGLYCERIN
     Indication: Product used for unknown indication
     Dosage: UNK, 1 TABLET
     Route: 048
     Dates: start: 20210309, end: 20210309
  6. GLIMEPIRIDE ACCORD HEALTHCARE [Concomitant]
     Indication: Product used for unknown indication
     Dosage: 4 MILLIGRAM,1 TABLETS MORNING AND EVENING
     Route: 048
  7. HYDROCHLOROTHIAZIDE\IRBESARTAN [Concomitant]
     Active Substance: HYDROCHLOROTHIAZIDE\IRBESARTAN
     Indication: Product used for unknown indication
     Dosage: UNK, 1 TABLET EVENING, 300 MG/25 MG,
     Route: 048
  8. NEBIVOLOL HYDROCHLORIDE [Concomitant]
     Active Substance: NEBIVOLOL HYDROCHLORIDE
     Indication: Product used for unknown indication
     Dosage: 5 MILLIGRAM, 1 CAPSULE IN THE EVENING
     Route: 048
     Dates: end: 20210325

REACTIONS (2)
  - Rash maculo-papular [Recovered/Resolved]
  - Polyuria [Recovered/Resolved]

NARRATIVE: CASE EVENT DATE: 20210227
